FAERS Safety Report 11656985 (Version 23)
Quarter: 2020Q1

REPORT INFORMATION
  Report Type: Spontaneous
  Country: US (occurrence: US)
  Receive Date: 20151023
  Receipt Date: 20200323
  Transmission Date: 20200409
  Serious: Yes (Disabling)
  Sender: FDA-Public Use
  Company Number: US-ACTELION PHARMACEUTICALS US, INC.-A-NJ2015-126083

PATIENT
  Age: 81 Year
  Sex: Female
  Weight: 65.76 kg

DRUGS (8)
  1. OPSUMIT [Suspect]
     Active Substance: MACITENTAN
     Dosage: UNK
     Route: 048
  2. COUMADIN [Concomitant]
     Active Substance: WARFARIN SODIUM
  3. ALOE VERA [Concomitant]
     Active Substance: ALOE VERA LEAF
  4. OPSUMIT [Suspect]
     Active Substance: MACITENTAN
     Dosage: 10 MG, QD
     Route: 048
  5. OPSUMIT [Suspect]
     Active Substance: MACITENTAN
     Indication: PULMONARY HYPERTENSION
     Dosage: 10 MG, QD
     Route: 048
     Dates: start: 2014
  6. SILDENAFIL CITRATE. [Concomitant]
     Active Substance: SILDENAFIL CITRATE
  7. OXYGEN. [Concomitant]
     Active Substance: OXYGEN
     Indication: DYSPNOEA
  8. AMLODIPINE [Concomitant]
     Active Substance: AMLODIPINE BESYLATE

REACTIONS (29)
  - Alopecia [Unknown]
  - Infection [Recovered/Resolved]
  - Neuropathy peripheral [Recovered/Resolved]
  - Bedridden [Unknown]
  - Osteoporosis [Unknown]
  - Dental caries [Recovered/Resolved]
  - Cataract [Unknown]
  - Inflammation [Unknown]
  - Speech disorder [Unknown]
  - Pulmonary hypertension [Unknown]
  - Hypoacusis [Unknown]
  - Cataract operation [Unknown]
  - Abdominal discomfort [Unknown]
  - Visual impairment [Unknown]
  - Fall [Recovered/Resolved]
  - Urinary tract infection [Unknown]
  - Dyspnoea [Unknown]
  - Anxiety [Unknown]
  - Psychotic disorder [Unknown]
  - Headache [Unknown]
  - Quality of life decreased [Unknown]
  - Dental care [Unknown]
  - Muscular weakness [Recovered/Resolved]
  - Oral pain [Recovered/Resolved]
  - Cystitis [Unknown]
  - Arthritis [Unknown]
  - Toothache [Unknown]
  - Arthralgia [Unknown]
  - Abdominal pain [Unknown]

NARRATIVE: CASE EVENT DATE: 20190516
